FAERS Safety Report 5126614-1 (Version None)
Quarter: 2006Q4

REPORT INFORMATION
  Report Type: 
  Country: None (occurrence: None)
  Receive Date: 20061013
  Receipt Date: 20061010
  Transmission Date: 20070319
  Serious: Yes (Life-Threatening, Hospitalization)
  Sender: FDA-Public Use
  Company Number: JP-BAYER-200614511GDS

PATIENT
  Age: 32 Year
  Sex: Male

DRUGS (2)
  1. BUFFERIN [Suspect]
     Indication: RESPIRATORY TRACT INFECTION
     Route: 048
     Dates: start: 20050601, end: 20050601
  2. VOLTAREN [Suspect]
     Indication: RESPIRATORY TRACT INFECTION
     Dosage: TOTAL DAILY DOSE: 50 MG  UNIT DOSE: 50 MG
     Route: 054
     Dates: start: 20050601, end: 20050601

REACTIONS (6)
  - BRAIN OEDEMA [None]
  - HEPATIC FUNCTION ABNORMAL [None]
  - HYPERAMMONAEMIA [None]
  - RESTLESSNESS [None]
  - REYE'S SYNDROME [None]
  - STATUS EPILEPTICUS [None]
